FAERS Safety Report 5788519-2 (Version None)
Quarter: 2008Q2

REPORT INFORMATION
  Report Type: 
  Country: None (occurrence: None)
  Receive Date: 20080625
  Receipt Date: 20080625
  Transmission Date: 20081010
  Serious: Yes (Other)
  Sender: FDA-Public Use
  Company Number: None

PATIENT

DRUGS (1)
  1. ISOVUE-300 [Suspect]
     Dosage: 57ML X 1 DOSE 040
     Dates: start: 20080618

REACTIONS (4)
  - CONTRAST MEDIA REACTION [None]
  - PRURITUS [None]
  - RASH [None]
  - SUNBURN [None]
